FAERS Safety Report 11883601 (Version 4)
Quarter: 2016Q2

REPORT INFORMATION
  Report Type: Report from Study
  Country: US (occurrence: US)
  Receive Date: 20160101
  Receipt Date: 20160422
  Transmission Date: 20160815
  Serious: Yes (Other)
  Sender: FDA-Public Use
  Company Number: US-AMGEN-USASL2015139619

PATIENT
  Age: 58 Year
  Sex: Female

DRUGS (3)
  1. CLOBETASOL [Concomitant]
     Active Substance: CLOBETASOL
     Indication: PSORIASIS
     Dosage: UNK
     Route: 065
  2. ENBREL [Suspect]
     Active Substance: ETANERCEPT
     Dosage: UNK
     Route: 065
  3. ENBREL [Suspect]
     Active Substance: ETANERCEPT
     Indication: PSORIASIS
     Dosage: 50 MG, 2 TIMES/WK
     Route: 065
     Dates: start: 20150626

REACTIONS (13)
  - Feeling abnormal [Unknown]
  - Skin disorder [Unknown]
  - Dry skin [Unknown]
  - Tinnitus [Unknown]
  - Drug dose omission [Unknown]
  - Pruritus [Unknown]
  - Psoriasis [Unknown]
  - Memory impairment [Unknown]
  - Nasopharyngitis [Unknown]
  - End stage renal disease [Unknown]
  - Fatigue [Unknown]
  - Visual acuity reduced [Unknown]
  - Fibromyalgia [Unknown]

NARRATIVE: CASE EVENT DATE: 20151228
